FAERS Safety Report 7670255 (Version 9)
Quarter: 2013Q1

REPORT INFORMATION
  Report Type: Spontaneous
  Country: US (occurrence: US)
  Receive Date: 20101116
  Receipt Date: 20130227
  Transmission Date: 20140127
  Serious: Yes (Other)
  Sender: FDA-Public Use
  Company Number: US-JNJFOC-20101103084

PATIENT
  Sex: Female

DRUGS (8)
  1. DOXORUBICIN HYDROCHLORIDE (DOXIL) [Suspect]
     Indication: OVARIAN CANCER METASTATIC
     Dosage: UNSPECIFIED DOSE EVERY 4-7 WEEKS FOR 11 YEARS;  CUMULATIVE DOSE 2320 MG/M2
     Route: 042
     Dates: start: 19980603, end: 20081111
  2. DOXORUBICIN HYDROCHLORIDE (DOXIL) [Suspect]
     Indication: OVARIAN EPITHELIAL CANCER RECURRENT
     Dosage: UNSPECIFIED DOSE EVERY 4-7 WEEKS FOR 11 YEARS;  CUMULATIVE DOSE 2320 MG/M2
     Route: 042
     Dates: start: 19980603, end: 20081111
  3. CISPLATIN [Suspect]
     Indication: OVARIAN CANCER RECURRENT
     Route: 065
  4. CISPLATIN [Suspect]
     Indication: OVARIAN CANCER RECURRENT
     Route: 033
  5. FLOXURIDINE [Suspect]
     Indication: OVARIAN CANCER RECURRENT
     Route: 065
  6. NORVASC [Concomitant]
     Route: 065
     Dates: start: 200506
  7. CALCIUM WITH VITAMIN D [Concomitant]
     Route: 065
  8. OMEGA3 [Concomitant]
     Route: 065

REACTIONS (6)
  - Tongue dysplasia [Recovered/Resolved]
  - Squamous cell carcinoma of the oral cavity [Unknown]
  - Breast neoplasm [Recovered/Resolved]
  - Axillary mass [Recovered/Resolved]
  - Squamous cell carcinoma of head and neck [Unknown]
  - Disease progression [Unknown]
